FAERS Safety Report 9586895 (Version 4)
Quarter: 2013Q4

REPORT INFORMATION
  Report Type: Spontaneous
  Country: JP (occurrence: JP)
  Receive Date: 20131003
  Receipt Date: 20131108
  Transmission Date: 20140711
  Serious: Yes (Death)
  Sender: FDA-Public Use
  Company Number: JP-SANOFI-AVENTIS-2013SA089584

PATIENT
  Age: 82 Year
  Sex: 0
  Weight: 57.8 kg

DRUGS (4)
  1. PLAVIX [Suspect]
     Indication: CEREBRAL INFARCTION
     Route: 048
     Dates: start: 20121110, end: 201308
  2. MEVALOTIN [Concomitant]
     Indication: CEREBRAL INFARCTION
     Route: 048
     Dates: start: 201211
  3. PANTOSIN [Concomitant]
     Indication: CONSTIPATION
     Route: 048
  4. MAGMITT [Concomitant]
     Indication: CONSTIPATION
     Route: 048

REACTIONS (7)
  - Hepatitis fulminant [Fatal]
  - Epigastric discomfort [Fatal]
  - Decreased appetite [Fatal]
  - Malaise [Fatal]
  - Jaundice [Fatal]
  - Blood bilirubin increased [Fatal]
  - Altered state of consciousness [Fatal]
